FAERS Safety Report 14235408 (Version 2)
Quarter: 2018Q4

REPORT INFORMATION
  Report Type: Spontaneous
  Country: CA (occurrence: CA)
  Receive Date: 20171129
  Receipt Date: 20181121
  Transmission Date: 20190204
  Serious: Yes (Other)
  Sender: FDA-Public Use
  Company Number: CA-ORION CORPORATION ORION PHARMA-TREX2017-3871

PATIENT
  Age: 51 Year
  Sex: Female

DRUGS (11)
  1. HYDROXYCHLOROQUINE [Suspect]
     Active Substance: HYDROXYCHLOROQUINE
     Route: 065
  2. LEFLUNOMIDE. [Suspect]
     Active Substance: LEFLUNOMIDE
     Route: 065
  3. METHOTREXATE (TRADE NAME UNKNOWN) [Suspect]
     Active Substance: METHOTREXATE
     Route: 048
  4. ABATACEPT [Suspect]
     Active Substance: ABATACEPT
     Route: 065
  5. METHOTREXATE (TRADE NAME UNKNOWN) [Suspect]
     Active Substance: METHOTREXATE
     Route: 051
  6. HUMIRA [Suspect]
     Active Substance: ADALIMUMAB
     Indication: RHEUMATOID ARTHRITIS
     Route: 058
  7. ENBREL [Suspect]
     Active Substance: ETANERCEPT
     Route: 065
  8. METHOTREXATE (TRADE NAME UNKNOWN) [Suspect]
     Active Substance: METHOTREXATE
     Route: 058
  9. AZATHIOPRINE. [Suspect]
     Active Substance: AZATHIOPRINE
     Route: 065
  10. RITUXAN [Suspect]
     Active Substance: RITUXIMAB
     Route: 042
  11. TOFACITINIB [Concomitant]
     Active Substance: TOFACITINIB
     Route: 065

REACTIONS (6)
  - Blood cholesterol increased [Unknown]
  - Drug ineffective [Unknown]
  - Drug intolerance [Unknown]
  - Synovitis [Unknown]
  - Anaphylactic reaction [Unknown]
  - Rash [Unknown]
